FAERS Safety Report 4637949-0 (Version None)
Quarter: 2005Q2

REPORT INFORMATION
  Report Type: 
  Country: None (occurrence: None)
  Receive Date: 20050418
  Receipt Date: 20050408
  Transmission Date: 20051028
  Serious: Yes (Hospitalization)
  Sender: FDA-Public Use
  Company Number: JP-ROCHE-401354

PATIENT
  Age: 77 Year
  Sex: Male

DRUGS (1)
  1. PANALDINE [Suspect]
     Indication: THROMBOSIS PROPHYLAXIS
     Route: 048
     Dates: start: 20050218, end: 20050301

REACTIONS (4)
  - LEUKOCYTOSIS [None]
  - RASH [None]
  - RENAL DISORDER [None]
  - THROMBOCYTOPENIA [None]
